FAERS Safety Report 13070851 (Version 2)
Quarter: 2017Q1

REPORT INFORMATION
  Report Type: Spontaneous
  Country: US (occurrence: US)
  Receive Date: 20161229
  Receipt Date: 20170104
  Transmission Date: 20170428
  Serious: Yes (Hospitalization)
  Sender: FDA-Public Use
  Company Number: US-APOTEX-2016AP016165

PATIENT
  Age: 72 Year
  Sex: Male

DRUGS (6)
  1. QUETIAPINE. [Concomitant]
     Active Substance: QUETIAPINE
     Indication: PRODUCT USED FOR UNKNOWN INDICATION
     Dosage: 50 MG, Q.H.S.
     Route: 048
  2. JEVITY                             /07473301/ [Suspect]
     Active Substance: DIETARY SUPPLEMENT
     Indication: ENTERAL NUTRITION
     Dosage: 150 ML, UNK
     Route: 065
  3. VALPROIC ACID. [Concomitant]
     Active Substance: VALPROIC ACID
     Indication: PRODUCT USED FOR UNKNOWN INDICATION
     Dosage: 125 MG, TID
     Route: 065
  4. CARBIDOPA AND LEVODOPA [Suspect]
     Active Substance: CARBIDOPA\LEVODOPA
     Dosage: UNK, 200MG/20MG
     Route: 065
  5. TWOCAL HN [Suspect]
     Active Substance: DIETARY SUPPLEMENT
     Indication: ENTERAL NUTRITION
     Dosage: UNK
     Route: 065
  6. CARBIDOPA AND LEVODOPA [Suspect]
     Active Substance: CARBIDOPA\LEVODOPA
     Indication: PRODUCT USED FOR UNKNOWN INDICATION
     Dosage: 100MG/10MG, FIVE TIME DAILY
     Route: 048

REACTIONS (3)
  - Drug withdrawal syndrome [Recovered/Resolved]
  - Pyrexia [Recovered/Resolved]
  - Food interaction [Recovered/Resolved]
